FAERS Safety Report 9635582 (Version 1)
Quarter: 2013Q4

REPORT INFORMATION
  Report Type: Spontaneous
  Country: US (occurrence: US)
  Receive Date: 20131021
  Receipt Date: 20131021
  Transmission Date: 20140711
  Serious: No
  Sender: FDA-Public Use
  Company Number: US-PURDUE-USA-2013-0103582

PATIENT
  Age: 59 Year
  Sex: Female

DRUGS (4)
  1. BUTRANS [Suspect]
     Indication: PAIN
     Dosage: 20 MCG/HR, WEEKLY
     Route: 062
     Dates: start: 20130528
  2. BUTRANS [Suspect]
     Dosage: 10 MCG/HR, WEEKLY
     Route: 062
     Dates: start: 2011, end: 201303
  3. OXYCONTIN (NDA 22-272) [Concomitant]
     Indication: PAIN
     Dosage: 20 MG, BID
     Route: 048
     Dates: start: 2011, end: 201305
  4. PERCOCET                           /00867901/ [Concomitant]
     Indication: BREAKTHROUGH PAIN
     Dosage: 1 TABLET (5/325 MG), PRN
     Route: 048
     Dates: start: 201303

REACTIONS (5)
  - Application site erythema [Not Recovered/Not Resolved]
  - Application site rash [Not Recovered/Not Resolved]
  - Application site pruritus [Not Recovered/Not Resolved]
  - Application site vesicles [Not Recovered/Not Resolved]
  - Drug ineffective [Not Recovered/Not Resolved]
